FAERS Safety Report 5789249-3 (Version None)
Quarter: 2008Q2

REPORT INFORMATION
  Report Type: 
  Country: None (occurrence: None)
  Receive Date: 20080625
  Receipt Date: 20080625
  Transmission Date: 20081010
  Serious: Yes (Hospitalization)
  Sender: FDA-Public Use
  Company Number: None

PATIENT
  Age: 33 Year
  Sex: Female
  Weight: 79.8331 kg

DRUGS (1)
  1. ZOLOFT [Suspect]
     Indication: ANXIETY
     Dosage: 1 TABLET 1 A DAY PO
     Route: 048
     Dates: start: 20080609, end: 20080610

REACTIONS (3)
  - ANXIETY [None]
  - SOMNOLENCE [None]
  - SUICIDAL IDEATION [None]
